FAERS Safety Report 6822337-9 (Version None)
Quarter: 2010Q3

REPORT INFORMATION
  Report Type: 
  Country: None (occurrence: None)
  Receive Date: 20100708
  Receipt Date: 20100623
  Transmission Date: 20110219
  Serious: Yes (Hospitalization, Other)
  Sender: FDA-Public Use
  Company Number: PHEH2010US03409

PATIENT
  Sex: Male
  Weight: 89.342 kg

DRUGS (4)
  1. AREDIA [Suspect]
  2. PEPCID [Concomitant]
  3. PRILOSEC [Concomitant]
  4. NORVASC [Concomitant]

REACTIONS (34)
  - ABDOMINAL PAIN [None]
  - ANTISOCIAL BEHAVIOUR [None]
  - ASTHENIA [None]
  - BLOOD GLUCOSE INCREASED [None]
  - BURSITIS [None]
  - CHEST PAIN [None]
  - CONSTIPATION [None]
  - DEPRESSED MOOD [None]
  - DIABETIC KETOACIDOSIS [None]
  - DIASTOLIC DYSFUNCTION [None]
  - DISTURBANCE IN ATTENTION [None]
  - DYSPNOEA EXERTIONAL [None]
  - DYSTHYMIC DISORDER [None]
  - ELBOW OPERATION [None]
  - EMPHYSEMA [None]
  - EXERCISE TOLERANCE DECREASED [None]
  - EYE DISORDER [None]
  - GASTROINTESTINAL MUCOSAL DISORDER [None]
  - HELICOBACTER GASTRITIS [None]
  - HYPERKERATOSIS [None]
  - HYPERTENSION [None]
  - JOINT STIFFNESS [None]
  - MEMORY IMPAIRMENT [None]
  - NAUSEA [None]
  - NERVE COMPRESSION [None]
  - OSTEOARTHRITIS [None]
  - PAIN [None]
  - PANCREATITIS ACUTE [None]
  - PARAESTHESIA [None]
  - PULPITIS DENTAL [None]
  - SLEEP DISORDER [None]
  - SPLINT APPLICATION [None]
  - TOOTHACHE [None]
  - WEIGHT DECREASED [None]
